FAERS Safety Report 19997107 (Version 1)
Quarter: 2021Q4

REPORT INFORMATION
  Report Type: Spontaneous
  Country: CN (occurrence: CN)
  Receive Date: 20211026
  Receipt Date: 20211026
  Transmission Date: 20220303
  Serious: Yes (Hospitalization)
  Sender: FDA-Public Use
  Company Number: CN-PFIZER INC-202101361254

PATIENT
  Age: 68 Year
  Sex: Male
  Weight: 50 kg

DRUGS (6)
  1. ZYVOX [Suspect]
     Active Substance: LINEZOLID
     Indication: Pulmonary tuberculosis
     Dosage: 0.6 G, 1X/DAY
     Route: 048
     Dates: start: 20210826, end: 20210916
  2. PYRAZINAMIDE [Suspect]
     Active Substance: PYRAZINAMIDE
     Indication: Pulmonary tuberculosis
     Dosage: 1.5 G, 1X/DAY
     Route: 048
     Dates: start: 20210826, end: 20210916
  3. CLOFAZIMINE [Suspect]
     Active Substance: CLOFAZIMINE
     Indication: Pulmonary tuberculosis
     Dosage: 0.2 G, 1X/DAY
     Route: 048
     Dates: start: 20210826, end: 20210916
  4. CYCLOSERINE [Suspect]
     Active Substance: CYCLOSERINE
     Indication: Pulmonary tuberculosis
     Dosage: 0.25 G, 1X/DAY
     Route: 048
     Dates: start: 20210826, end: 20210916
  5. CYCLOSERINE [Suspect]
     Active Substance: CYCLOSERINE
     Dosage: 0.5 G, 1X/DAY
     Route: 048
     Dates: start: 20210826, end: 20210916
  6. MOXIFLOXACIN HYDROCHLORIDE [Suspect]
     Active Substance: MOXIFLOXACIN HYDROCHLORIDE
     Indication: Pulmonary tuberculosis
     Dosage: 0.4 G, 1X/DAY
     Route: 048
     Dates: start: 20210826, end: 20211008

REACTIONS (3)
  - Hepatic function abnormal [Recovering/Resolving]
  - Drug-induced liver injury [Recovering/Resolving]
  - Off label use [Unknown]

NARRATIVE: CASE EVENT DATE: 20210826
